FAERS Safety Report 8399770-X (Version None)
Quarter: 2012Q2

REPORT INFORMATION
  Report Type: 
  Country: None (occurrence: None)
  Receive Date: 20120531
  Receipt Date: 20120523
  Transmission Date: 20120825
  Serious: Yes (Other)
  Sender: FDA-Public Use
  Company Number: US-BRISTOL-MYERS SQUIBB COMPANY-15918444

PATIENT
  Age: 56 Year
  Sex: Male

DRUGS (2)
  1. STEROIDS [Concomitant]
     Dates: start: 20110721
  2. IPILIMUMAB [Suspect]
     Indication: MALIGNANT MELANOMA
     Dosage: NO OF COURSES: 04
     Route: 042
     Dates: start: 20110304, end: 20110509

REACTIONS (1)
  - RETINAL PIGMENTATION [None]
